FAERS Safety Report 23059466 (Version 1)
Quarter: 2023Q4

REPORT INFORMATION
  Report Type: Report from Study
  Country: DE (occurrence: DE)
  Receive Date: 20231012
  Receipt Date: 20231012
  Transmission Date: 20240110
  Serious: Yes (Hospitalization)
  Sender: FDA-Public Use
  Company Number: DE-JNJFOC-20230514909

PATIENT
  Age: 73 Year
  Sex: Male
  Weight: 75 kg

DRUGS (15)
  1. TECLISTAMAB [Suspect]
     Active Substance: TECLISTAMAB
     Indication: Plasma cell myeloma refractory
     Route: 058
     Dates: start: 20220621, end: 20220623
  2. TECLISTAMAB [Suspect]
     Active Substance: TECLISTAMAB
     Route: 058
     Dates: start: 20220627, end: 20230411
  3. DARATUMUMAB [Suspect]
     Active Substance: DARATUMUMAB
     Indication: Plasma cell myeloma refractory
     Route: 058
     Dates: start: 20220620, end: 20230411
  4. ACYCLOVIR [Concomitant]
     Active Substance: ACYCLOVIR
     Indication: Antiviral prophylaxis
     Dosage: 600 UNITS NOT SPECIFIED
     Route: 048
     Dates: start: 20180101
  5. ASPIRIN [Concomitant]
     Active Substance: ASPIRIN
     Indication: Aortic stenosis
     Dosage: 100 UNITS NOT SPECIFIED
     Route: 048
     Dates: start: 20200101, end: 20230711
  6. ATORVASTATIN [Concomitant]
     Active Substance: ATORVASTATIN
     Indication: Aortic stenosis
     Dosage: 10 UNITS NOT REPORTED
     Route: 048
     Dates: start: 20200101, end: 20230508
  7. METOPROLOL [Concomitant]
     Active Substance: METOPROLOL
     Indication: Hypertension
     Dosage: 95 UNITS NOT REPORTED
     Route: 048
     Dates: start: 20210101
  8. SULFAMETHOXAZOLE\TRIMETHOPRIM [Concomitant]
     Active Substance: SULFAMETHOXAZOLE\TRIMETHOPRIM
     Indication: Antifungal prophylaxis
     Dosage: 960 UNITS NOT REPORTED
     Route: 048
     Dates: start: 20220620
  9. PANTOPRAZOLE [Concomitant]
     Active Substance: PANTOPRAZOLE
     Indication: Prophylaxis against gastrointestinal ulcer
     Dosage: 20 UNITS NOT REPORTED
     Route: 048
     Dates: start: 20220620
  10. VALSARTAN [Concomitant]
     Active Substance: VALSARTAN
     Indication: Hypertension
     Dosage: 240 UNITS NOT REPORTED
     Route: 048
     Dates: start: 20220817, end: 20230612
  11. FONDAPARINUX [Concomitant]
     Active Substance: FONDAPARINUX
     Indication: Thrombosis prophylaxis
     Dosage: 2.5
     Route: 058
     Dates: start: 20230505, end: 20230521
  12. AMLODIPINE [Concomitant]
     Active Substance: AMLODIPINE BESYLATE
     Indication: Hypertension
     Dosage: 5
     Route: 048
     Dates: start: 20230515, end: 20230612
  13. TIOTROPIUM BROMIDE [Concomitant]
     Active Substance: TIOTROPIUM BROMIDE
     Indication: Chronic obstructive pulmonary disease
     Dosage: 2
     Route: 055
     Dates: start: 20230522
  14. OXYGEN [Concomitant]
     Active Substance: OXYGEN
     Indication: Chronic obstructive pulmonary disease
     Dosage: 2
     Route: 045
     Dates: start: 20230522
  15. SPIRIVA [Concomitant]
     Active Substance: TIOTROPIUM BROMIDE MONOHYDRATE
     Indication: Chronic obstructive pulmonary disease
     Dosage: 2
     Route: 055
     Dates: start: 20230522

REACTIONS (1)
  - Bronchopulmonary aspergillosis [Recovered/Resolved]

NARRATIVE: CASE EVENT DATE: 20230504
